FAERS Safety Report 17160414 (Version 1)
Quarter: 2019Q4

REPORT INFORMATION
  Report Type: Spontaneous
  Country: MX (occurrence: MX)
  Receive Date: 20191216
  Receipt Date: 20191216
  Transmission Date: 20200122
  Serious: Yes (Other)
  Sender: FDA-Public Use
  Company Number: MX-ASTRAZENECA-2019SF81639

PATIENT
  Age: 16533 Day
  Sex: Female

DRUGS (1)
  1. XIGDUO XR [Suspect]
     Active Substance: DAPAGLIFLOZIN PROPANEDIOL\METFORMIN HYDROCHLORIDE
     Indication: DIABETES MELLITUS
     Dosage: 10 MG/1000 MG 1 TABLET DAILY
     Route: 048
     Dates: end: 20181008

REACTIONS (1)
  - Bartholinitis [Recovering/Resolving]

NARRATIVE: CASE EVENT DATE: 20181008
